FAERS Safety Report 9308807 (Version 1)
Quarter: 2013Q2

REPORT INFORMATION
  Report Type: Report from Study
  Country: FR (occurrence: FR)
  Receive Date: 20130524
  Receipt Date: 20130524
  Transmission Date: 20140414
  Serious: Yes (Hospitalization, Other)
  Sender: FDA-Public Use
  Company Number: FR-TEVA-375563USA

PATIENT
  Age: 77 Year
  Sex: Male
  Weight: 72 kg

DRUGS (27)
  1. TREANDA [Suspect]
     Indication: MANTLE CELL LYMPHOMA
     Route: 042
     Dates: start: 20121008, end: 20121008
  2. TREANDA [Suspect]
     Route: 042
     Dates: start: 20121105
  3. TREANDA [Suspect]
     Route: 042
     Dates: start: 20121203, end: 20121204
  4. TREANDA [Suspect]
     Route: 042
     Dates: start: 20130110
  5. RITUXIMAB [Suspect]
     Indication: MANTLE CELL LYMPHOMA
     Dosage: 727.5 MILLIGRAM DAILY; REGIMEN#2
     Route: 042
     Dates: start: 20121203
  6. RITUXIMAB [Suspect]
     Dosage: 727.5 MILLIGRAM DAILY; 1ST CYCLE
     Route: 042
     Dates: start: 20121008, end: 20121105
  7. RITUXIMAB [Suspect]
     Dosage: REGIMEN#3
     Route: 042
     Dates: start: 20130110
  8. DEXAMETHASONE [Suspect]
     Indication: MANTLE CELL LYMPHOMA
     Dosage: 40 MILLIGRAM DAILY; UNKNOWN/D
     Route: 042
     Dates: start: 20121106
  9. DEXAMETHASONE [Suspect]
     Dosage: REGIMEN#2
     Route: 042
     Dates: start: 20121204
  10. DEXAMETHASONE [Suspect]
     Dosage: REGIMEN#3
     Route: 042
     Dates: start: 20130111
  11. VELCADE [Suspect]
     Indication: MANTLE CELL LYMPHOMA
     Dosage: 2.52 MILLIGRAM DAILY;
     Route: 058
     Dates: start: 20121008
  12. VELCADE [Suspect]
     Dosage: 2.52 MILLIGRAM DAILY;
     Route: 058
     Dates: start: 20121105
  13. VELCADE [Suspect]
     Dosage: 2.52 MILLIGRAM DAILY; REGIMEN #3
     Route: 058
     Dates: start: 20121203, end: 20121213
  14. VELCADE [Suspect]
     Dosage: REGIMEN#4
     Route: 058
     Dates: start: 20130110
  15. ATENOLOL [Concomitant]
  16. AMLOR [Concomitant]
     Route: 048
  17. HYPERIUM [Concomitant]
     Route: 048
  18. LASILIX [Concomitant]
     Route: 048
  19. KARDEGIC [Concomitant]
     Route: 048
  20. AVALON [Concomitant]
  21. LASODEX [Concomitant]
     Dosage: 40
  22. XATRAL [Concomitant]
     Route: 048
  23. KALEORID [Concomitant]
     Route: 048
  24. LOVENOX [Concomitant]
     Route: 048
  25. CORDARONE [Concomitant]
     Route: 048
  26. CRESTOR [Concomitant]
     Route: 048
  27. INEXIUM [Concomitant]
     Route: 048

REACTIONS (6)
  - Cardiac failure [Recovered/Resolved]
  - Ventricular tachycardia [Recovered/Resolved]
  - Anuria [Recovered/Resolved]
  - Cardiac failure congestive [Recovered/Resolved]
  - Infusion related reaction [Recovered/Resolved]
  - Bronchitis [Unknown]
